FAERS Safety Report 4776374-9 (Version None)
Quarter: 2005Q3

REPORT INFORMATION
  Report Type: 
  Country: None (occurrence: None)
  Receive Date: 20050921
  Receipt Date: 20050907
  Transmission Date: 20060218
  Serious: Yes (Other)
  Sender: FDA-Public Use
  Company Number: DE_050515845

PATIENT
  Age: 55 Year
  Sex: Female
  Weight: 63 kg

DRUGS (8)
  1. FORTEO [Suspect]
     Indication: OSTEOPOROSIS
     Dosage: 20 UG /1 DAY
     Dates: start: 20040821, end: 20050405
  2. ZYRTEC [Concomitant]
  3. CALCIUM GLUCONATE [Concomitant]
  4. MAGNESIUM [Concomitant]
  5. CELEBREX [Concomitant]
  6. ZOLPIDEM TARTRATE [Concomitant]
  7. NOVALGIN (METAMIZOLE SODIUM MONOHYDRATE) [Concomitant]
  8. ASTHMA -SPRAY(SALBUTAMOL) [Concomitant]

REACTIONS (7)
  - CALCINOSIS [None]
  - GRANULOMA [None]
  - HAIR GROWTH ABNORMAL [None]
  - HYPERKERATOSIS [None]
  - PANNICULITIS LOBULAR [None]
  - SEPTAL PANNICULITIS [None]
  - WEIGHT INCREASED [None]
